FAERS Safety Report 9715663 (Version 1)
Quarter: 2013Q4

REPORT INFORMATION
  Report Type: Spontaneous
  Country: US (occurrence: US)
  Receive Date: 20131127
  Receipt Date: 20131127
  Transmission Date: 20140711
  Serious: Yes (Other)
  Sender: FDA-Public Use
  Company Number: US-ASTRAZENECA-2013SE85539

PATIENT
  Age: 58 Year
  Sex: Female
  Weight: 50 kg

DRUGS (3)
  1. BRILINTA [Suspect]
     Indication: PERCUTANEOUS CORONARY INTERVENTION
     Route: 048
  2. UNSPECIFIED ANTIVIRALS [Concomitant]
     Indication: HIV TEST POSITIVE
  3. LOW DOSE ASPIRIN [Concomitant]
     Indication: DRUG THERAPY

REACTIONS (1)
  - Thrombosis in device [Unknown]
